FAERS Safety Report 9060622 (Version 2)
Quarter: 2013Q1

REPORT INFORMATION
  Report Type: Report from Study
  Country: FR (occurrence: FR)
  Receive Date: 20130212
  Receipt Date: 20130226
  Transmission Date: 20140127
  Serious: Yes (Hospitalization)
  Sender: FDA-Public Use
  Company Number: FR-UCBSA-070465

PATIENT
  Age: 49 Year
  Sex: Female
  Weight: 98 kg

DRUGS (7)
  1. CIMZIA [Suspect]
     Indication: RHEUMATOID ARTHRITIS
     Route: 058
     Dates: start: 20120713, end: 20121125
  2. CORTANCYL [Concomitant]
     Indication: RHEUMATOID ARTHRITIS
     Route: 048
     Dates: start: 1994
  3. MOPRAL [Concomitant]
     Indication: RHEUMATOID ARTHRITIS
     Route: 048
  4. DAFALGAN [Concomitant]
     Indication: RHEUMATOID ARTHRITIS
     Dosage: 1 G AS REQUESTED
     Route: 048
  5. DAFALGAN CODEINE [Concomitant]
     Indication: RHEUMATOID ARTHRITIS
     Dosage: 1 G AS REQUESTED
     Route: 048
  6. AERIUS [Concomitant]
     Indication: HYPERSENSITIVITY
     Route: 048
  7. AUGMENTIN [Concomitant]
     Dates: start: 201211, end: 201211

REACTIONS (7)
  - Dyspnoea [Recovered/Resolved]
  - Generalised oedema [Unknown]
  - Asthma [Unknown]
  - Oral candidiasis [Unknown]
  - Alopecia [Not Recovered/Not Resolved]
  - Malaise [Unknown]
  - Erythrosis [Unknown]
